FAERS Safety Report 21631611 (Version 1)
Quarter: 2022Q4

REPORT INFORMATION
  Report Type: Spontaneous
  Country: IT (occurrence: None)
  Receive Date: 20221123
  Receipt Date: 20221123
  Transmission Date: 20230112
  Serious: Yes (Other)
  Sender: FDA-Public Use
  Company Number: 2022A378658

PATIENT
  Age: 77 Year
  Sex: Female

DRUGS (9)
  1. TICAGRELOR [Suspect]
     Active Substance: TICAGRELOR
     Route: 048
     Dates: start: 20220101
  2. ASPIRIN [Suspect]
     Active Substance: ASPIRIN
     Route: 048
     Dates: start: 20220101
  3. DULOXETINE [Concomitant]
     Active Substance: DULOXETINE
  4. DAPSONE [Concomitant]
     Active Substance: DAPSONE
  5. HYDROCHLOROTHIAZIDE\TELMISARTAN [Concomitant]
     Active Substance: HYDROCHLOROTHIAZIDE\TELMISARTAN
  6. HYDROCHLOROTHIAZIDE [Concomitant]
     Active Substance: HYDROCHLOROTHIAZIDE
  7. BISOPROLOL FUMARATE [Concomitant]
     Active Substance: BISOPROLOL FUMARATE
  8. ATORVASTATIN [Concomitant]
     Active Substance: ATORVASTATIN
  9. PANTOPRAZOLE SODIUM [Concomitant]
     Active Substance: PANTOPRAZOLE SODIUM

REACTIONS (2)
  - Abdominal pain [Recovering/Resolving]
  - Rectal haemorrhage [Recovering/Resolving]

NARRATIVE: CASE EVENT DATE: 20220719
